FAERS Safety Report 15163774 (Version 7)
Quarter: 2019Q1

REPORT INFORMATION
  Report Type: Spontaneous
  Country: US (occurrence: US)
  Receive Date: 20180719
  Receipt Date: 20190311
  Transmission Date: 20190417
  Serious: Yes (Other)
  Sender: FDA-Public Use
  Company Number: US-BRISTOL-MYERS SQUIBB COMPANY-BMS-2018-066395

PATIENT
  Sex: Female
  Weight: 59.86 kg

DRUGS (1)
  1. ORENCIA [Suspect]
     Active Substance: ABATACEPT
     Indication: RHEUMATOID ARTHRITIS
     Dosage: 125 MG, QWK
     Route: 058
     Dates: start: 201806

REACTIONS (9)
  - Device issue [Unknown]
  - Localised infection [Unknown]
  - Infection [Unknown]
  - Arthropathy [Unknown]
  - Arthralgia [Not Recovered/Not Resolved]
  - Head injury [Unknown]
  - Erythema [Not Recovered/Not Resolved]
  - Herpes zoster [Recovering/Resolving]
  - Back disorder [Unknown]
